FAERS Safety Report 14629708 (Version 1)
Quarter: 2018Q1

REPORT INFORMATION
  Report Type: Spontaneous
  Country: FR (occurrence: FR)
  Receive Date: 20180313
  Receipt Date: 20180313
  Transmission Date: 20180509
  Serious: Yes (Other)
  Sender: FDA-Public Use
  Company Number: FR-MERCK KGAA-2043595

PATIENT
  Age: 36 Year
  Sex: Female

DRUGS (1)
  1. NOVOTHYROX [Suspect]
     Active Substance: LEVOTHYROXINE SODIUM
     Indication: PRODUCT USED FOR UNKNOWN INDICATION

REACTIONS (13)
  - Migraine [None]
  - Fatigue [None]
  - Haematocrit decreased [None]
  - Back pain [None]
  - Hyperthyroidism [None]
  - Amnesia [None]
  - Thyroglobulin decreased [None]
  - Impaired driving ability [None]
  - Headache [None]
  - Renal pain [None]
  - Crying [None]
  - Irritability [None]
  - Partner stress [None]

NARRATIVE: CASE EVENT DATE: 20170824
